FAERS Safety Report 5196193-1 (Version None)
Quarter: 2007Q1

REPORT INFORMATION
  Report Type: 
  Country: None (occurrence: None)
  Receive Date: 20070102
  Receipt Date: 20061221
  Transmission Date: 20070707
  Serious: Yes (Disabling)
  Sender: FDA-Public Use
  Company Number: CH-PFIZER INC-2006133475

PATIENT
  Age: 43 Year
  Sex: Female
  Weight: 63 kg

DRUGS (5)
  1. LYRICA [Suspect]
     Indication: NEURALGIA
     Route: 048
  2. MORPHINE SULFATE [Interacting]
     Route: 048
  3. SEROPRAM [Interacting]
     Route: 048
  4. SERESTA FORTE [Interacting]
     Route: 048
  5. ROHYPNOL [Interacting]
     Route: 048

REACTIONS (4)
  - DEPRESSED LEVEL OF CONSCIOUSNESS [None]
  - DRUG INTERACTION [None]
  - FEELING ABNORMAL [None]
  - MEMORY IMPAIRMENT [None]
